FAERS Safety Report 4602277-6 (Version None)
Quarter: 2005Q1

REPORT INFORMATION
  Report Type: 
  Country: None (occurrence: None)
  Receive Date: 20050201
  Receipt Date: 20040506
  Transmission Date: 20050727
  Serious: Yes (Other)
  Sender: FDA-Public Use
  Company Number: 200417812BWH

PATIENT
  Age: 32 Year
  Sex: Female
  Weight: 66.2252 kg

DRUGS (4)
  1. AVELOX [Suspect]
     Indication: PHARYNGITIS
     Dosage: 400 MG, TOTAL DAILY, ORAL
     Route: 048
     Dates: start: 20040414
  2. AVELOX [Suspect]
     Indication: SINUSITIS
     Dosage: 400 MG, TOTAL DAILY, ORAL
     Route: 048
     Dates: start: 20040414
  3. NEXIUM [Concomitant]
  4. XANAX [Concomitant]

REACTIONS (9)
  - ANAPHYLACTIC REACTION [None]
  - ASTHENIA [None]
  - DIZZINESS [None]
  - DYSPNOEA [None]
  - FEELING ABNORMAL [None]
  - HYPOTENSION [None]
  - PRURITUS [None]
  - SYNCOPE [None]
  - URTICARIA [None]
